FAERS Safety Report 5971330-7 (Version None)
Quarter: 2008Q4

REPORT INFORMATION
  Report Type: 
  Country: None (occurrence: None)
  Receive Date: 20081128
  Receipt Date: 20081121
  Transmission Date: 20090506
  Serious: Yes (Other)
  Sender: FDA-Public Use
  Company Number: US-PFIZER INC-2008099905

PATIENT
  Age: 16 Year

DRUGS (1)
  1. LYRICA [Suspect]

REACTIONS (2)
  - CONVULSION [None]
  - HYPOGLYCAEMIA [None]
